FAERS Safety Report 17958210 (Version 1)
Quarter: 2020Q2

REPORT INFORMATION
  Report Type: Spontaneous
  Country: US (occurrence: US)
  Receive Date: 20200629
  Receipt Date: 20200629
  Transmission Date: 20200714
  Serious: Yes (Other)
  Sender: FDA-Public Use
  Company Number: US-ALLERGAN-2022887US

PATIENT
  Sex: Female

DRUGS (1)
  1. RESTASIS [Suspect]
     Active Substance: CYCLOSPORINE
     Indication: DRY EYE
     Dosage: 2 GTT, BID
     Route: 047
     Dates: start: 201403, end: 202006

REACTIONS (5)
  - Eye infection [Recovered/Resolved]
  - Expired product administered [Unknown]
  - Lung neoplasm malignant [Unknown]
  - Brain neoplasm [Unknown]
  - Eye irritation [Recovered/Resolved]

NARRATIVE: CASE EVENT DATE: 201406
